FAERS Safety Report 11750661 (Version 2)
Quarter: 2015Q4

REPORT INFORMATION
  Report Type: Report from Study
  Country: JP (occurrence: JP)
  Receive Date: 20151118
  Receipt Date: 20151224
  Transmission Date: 20160304
  Serious: Yes (Hospitalization)
  Sender: FDA-Public Use
  Company Number: JP-VIFOR (INTERNATIONAL) INC.-VIT-2015-03148

PATIENT
  Age: 81 Year
  Sex: Female

DRUGS (60)
  1. MIRCERA [Suspect]
     Active Substance: METHOXY POLYETHYLENE GLYCOL-EPOETIN BETA
     Route: 058
     Dates: start: 20130424, end: 20130424
  2. MIRCERA [Suspect]
     Active Substance: METHOXY POLYETHYLENE GLYCOL-EPOETIN BETA
     Route: 058
     Dates: start: 20130116, end: 20130116
  3. WARFARIN [Suspect]
     Active Substance: WARFARIN
     Indication: PRODUCT USED FOR UNKNOWN INDICATION
     Route: 048
     Dates: start: 20121107, end: 20131008
  4. WARFARIN [Suspect]
     Active Substance: WARFARIN
     Route: 048
     Dates: start: 20131009, end: 20140910
  5. WARFARIN [Suspect]
     Active Substance: WARFARIN
     Route: 048
     Dates: start: 20141008, end: 20141102
  6. WARFARIN [Suspect]
     Active Substance: WARFARIN
     Route: 048
     Dates: start: 20120801, end: 20120910
  7. WARFARIN [Suspect]
     Active Substance: WARFARIN
     Route: 048
     Dates: end: 20120731
  8. MAGLAX [Concomitant]
     Active Substance: MAGNESIUM OXIDE
  9. METHYCOBAL [Concomitant]
     Active Substance: METHYLCOBALAMIN
     Route: 048
  10. MIRCERA [Suspect]
     Active Substance: METHOXY POLYETHYLENE GLYCOL-EPOETIN BETA
     Route: 058
     Dates: start: 20130814, end: 20130814
  11. MIRCERA [Suspect]
     Active Substance: METHOXY POLYETHYLENE GLYCOL-EPOETIN BETA
     Route: 058
     Dates: start: 20131106, end: 20131106
  12. MIRCERA [Suspect]
     Active Substance: METHOXY POLYETHYLENE GLYCOL-EPOETIN BETA
     Route: 058
     Dates: start: 20150128
  13. WARFARIN [Suspect]
     Active Substance: WARFARIN
     Route: 048
     Dates: start: 20140916, end: 20140930
  14. WARFARIN [Suspect]
     Active Substance: WARFARIN
     Route: 048
     Dates: start: 20121010, end: 20121016
  15. DIART [Concomitant]
     Active Substance: AZOSEMIDE
     Route: 048
     Dates: start: 20120802
  16. BASEN [Concomitant]
     Active Substance: VOGLIBOSE
     Route: 048
     Dates: start: 20120817, end: 20130116
  17. SAMSCA [Concomitant]
     Active Substance: TOLVAPTAN
     Route: 048
     Dates: start: 20140926
  18. BERASUS LA [Concomitant]
  19. PROTERNOL [Concomitant]
     Active Substance: ISOPROTERENOL
     Route: 048
     Dates: start: 20141017
  20. NESINA [Concomitant]
     Active Substance: ALOGLIPTIN BENZOATE
     Route: 048
     Dates: start: 20140924
  21. LASIX [Concomitant]
     Active Substance: FUROSEMIDE
     Route: 048
     Dates: start: 20120831, end: 20140918
  22. WARFARIN POTASSIUM [Concomitant]
     Active Substance: WARFARIN POTASSIUM
     Route: 048
     Dates: start: 20141103, end: 20150106
  23. FESIN [Concomitant]
     Active Substance: IRON SUCROSE
     Route: 042
     Dates: start: 20140926, end: 20141009
  24. MIRCERA [Suspect]
     Active Substance: METHOXY POLYETHYLENE GLYCOL-EPOETIN BETA
     Route: 058
     Dates: start: 20130522, end: 20130619
  25. MIRCERA [Suspect]
     Active Substance: METHOXY POLYETHYLENE GLYCOL-EPOETIN BETA
     Route: 058
     Dates: start: 20141217
  26. WARFARIN [Suspect]
     Active Substance: WARFARIN
     Route: 048
     Dates: start: 20150107
  27. TAKEPRON [Concomitant]
     Active Substance: LANSOPRAZOLE
     Route: 048
  28. HALCION [Concomitant]
     Active Substance: TRIAZOLAM
     Route: 048
  29. NESINA [Concomitant]
     Active Substance: ALOGLIPTIN BENZOATE
     Route: 048
     Dates: start: 20130117, end: 20130522
  30. LASIX [Concomitant]
     Active Substance: FUROSEMIDE
     Route: 048
     Dates: start: 20140919
  31. WARFARIN POTASSIUM [Concomitant]
     Active Substance: WARFARIN POTASSIUM
     Route: 048
     Dates: start: 20141008, end: 20141102
  32. MIRCERA [Suspect]
     Active Substance: METHOXY POLYETHYLENE GLYCOL-EPOETIN BETA
     Route: 058
     Dates: start: 20140924, end: 20150924
  33. BLOPRESS [Concomitant]
     Active Substance: CANDESARTAN CILEXETIL
     Route: 048
  34. FEBURIC [Concomitant]
     Active Substance: FEBUXOSTAT
     Route: 048
     Dates: start: 20120829, end: 20141023
  35. THYRADIN-S [Concomitant]
     Active Substance: LEVOTHYROXINE
     Route: 048
     Dates: end: 20131105
  36. PURSENNID [Concomitant]
     Active Substance: SENNOSIDES A AND B
     Route: 048
  37. THEO-DUR [Concomitant]
     Active Substance: THEOPHYLLINE ANHYDROUS
     Route: 048
     Dates: start: 20141023
  38. MIRCERA [Suspect]
     Active Substance: METHOXY POLYETHYLENE GLYCOL-EPOETIN BETA
     Route: 058
     Dates: start: 20130911, end: 20130911
  39. PIMOBENDAN [Concomitant]
     Active Substance: PIMOBENDAN
     Route: 048
  40. PROTERNOL [Concomitant]
     Active Substance: ISOPROTERENOL
     Route: 048
     Dates: end: 20141008
  41. NESINA [Concomitant]
     Active Substance: ALOGLIPTIN BENZOATE
     Route: 048
     Dates: start: 20140327, end: 20140923
  42. MIRCERA [Suspect]
     Active Substance: METHOXY POLYETHYLENE GLYCOL-EPOETIN BETA
     Route: 058
     Dates: start: 20130327, end: 20130327
  43. MIRCERA [Suspect]
     Active Substance: METHOXY POLYETHYLENE GLYCOL-EPOETIN BETA
     Route: 058
     Dates: start: 20130717, end: 20150717
  44. MIRCERA [Suspect]
     Active Substance: METHOXY POLYETHYLENE GLYCOL-EPOETIN BETA
     Route: 058
     Dates: start: 20140129, end: 20140129
  45. WARFARIN [Suspect]
     Active Substance: WARFARIN
     Route: 048
     Dates: start: 20121017, end: 20121106
  46. AMLODIN [Concomitant]
     Active Substance: AMLODIPINE BESYLATE
     Route: 048
     Dates: start: 20130116
  47. SAMSCA [Concomitant]
     Active Substance: TOLVAPTAN
     Route: 048
     Dates: start: 20140925, end: 20140925
  48. MIRCERA [Suspect]
     Active Substance: METHOXY POLYETHYLENE GLYCOL-EPOETIN BETA
     Indication: NEPHROGENIC ANAEMIA
     Route: 058
     Dates: start: 20130227, end: 20130227
  49. MIRCERA [Suspect]
     Active Substance: METHOXY POLYETHYLENE GLYCOL-EPOETIN BETA
     Route: 058
     Dates: start: 20131009, end: 20131009
  50. MIRCERA [Suspect]
     Active Substance: METHOXY POLYETHYLENE GLYCOL-EPOETIN BETA
     Route: 058
     Dates: start: 20131204, end: 20131204
  51. MIRCERA [Suspect]
     Active Substance: METHOXY POLYETHYLENE GLYCOL-EPOETIN BETA
     Route: 058
     Dates: start: 20131225, end: 20131225
  52. MIRCERA [Suspect]
     Active Substance: METHOXY POLYETHYLENE GLYCOL-EPOETIN BETA
     Route: 058
     Dates: start: 20140326, end: 20140521
  53. MIRCERA [Suspect]
     Active Substance: METHOXY POLYETHYLENE GLYCOL-EPOETIN BETA
     Route: 058
     Dates: start: 20140618, end: 20140813
  54. MIRCERA [Suspect]
     Active Substance: METHOXY POLYETHYLENE GLYCOL-EPOETIN BETA
     Route: 058
     Dates: start: 20140910, end: 20140910
  55. WARFARIN [Suspect]
     Active Substance: WARFARIN
     Route: 048
     Dates: start: 20141103, end: 20150106
  56. WARFARIN [Suspect]
     Active Substance: WARFARIN
     Route: 048
     Dates: start: 20120911, end: 20121009
  57. FEBURIC [Concomitant]
     Active Substance: FEBUXOSTAT
     Route: 048
     Dates: start: 20141024
  58. THYRADIN-S [Concomitant]
     Active Substance: LEVOTHYROXINE
     Route: 048
     Dates: start: 20121204
  59. THYRADIN-S [Concomitant]
     Active Substance: LEVOTHYROXINE
     Route: 048
     Dates: start: 20131116, end: 20131203
  60. NESINA [Concomitant]
     Active Substance: ALOGLIPTIN BENZOATE
     Route: 048
     Dates: start: 20130523, end: 20140326

REACTIONS (5)
  - Cardiac failure chronic [Recovering/Resolving]
  - Paralysis [Unknown]
  - Subdural haematoma [Recovering/Resolving]
  - Fall [Unknown]
  - Altered state of consciousness [Unknown]

NARRATIVE: CASE EVENT DATE: 20140908
